FAERS Safety Report 4956278-9 (Version None)
Quarter: 2006Q1

REPORT INFORMATION
  Report Type: 
  Country: None (occurrence: None)
  Receive Date: 20060323
  Receipt Date: 20060307
  Transmission Date: 20060701
  Serious: Yes (Hospitalization)
  Sender: FDA-Public Use
  Company Number: CA200603002284

PATIENT
  Age: 51 Year
  Sex: Female

DRUGS (16)
  1. FORTEO [Suspect]
     Indication: OSTEOPOROSIS
     Dosage: 20 UG, DAILY (1/D)
     Dates: start: 20051030, end: 20060115
  2. FORTEO [Concomitant]
  3. CYCLOBENZAPRINE HCL [Concomitant]
  4. LEFLUNOMIDE [Concomitant]
  5. FOLIC ACID [Concomitant]
  6. ATENOLOL [Concomitant]
  7. PREDNISONE TAB [Concomitant]
  8. WARFARIN SODIUM [Concomitant]
  9. ALPRAZOLAM [Concomitant]
  10. OXYBUTYNIN CHLORIDE [Concomitant]
  11. LOSEC (OMEPRAZOLE) [Concomitant]
  12. FERROUS GLUCONATE (FERROUS GLUCONATE) [Concomitant]
  13. NOVASEN (ACETYLSALICYLIC ACID) [Concomitant]
  14. CALCIUM (CALCIUM) [Concomitant]
  15. VITAMIN D [Concomitant]
  16. METHOTREXATE [Concomitant]

REACTIONS (3)
  - CONSTIPATION [None]
  - DIARRHOEA [None]
  - HIP SURGERY [None]
